FAERS Safety Report 6291179-8 (Version None)
Quarter: 2009Q3

REPORT INFORMATION
  Report Type: 
  Country: None (occurrence: None)
  Receive Date: 20090730
  Receipt Date: 20090723
  Transmission Date: 20100115
  Serious: Yes (Other)
  Sender: FDA-Public Use
  Company Number: B0586228A

PATIENT
  Sex: Male

DRUGS (5)
  1. LEVOFLOXACIN [Suspect]
     Indication: DRUG USE FOR UNKNOWN INDICATION
     Dosage: 500MG THREE TIMES PER DAY
     Route: 048
     Dates: start: 20090309, end: 20090309
  2. VALTREX [Suspect]
     Indication: DRUG USE FOR UNKNOWN INDICATION
     Dosage: 2G PER DAY
     Route: 048
     Dates: start: 20090309, end: 20090309
  3. FLEBOGAMMA [Suspect]
     Indication: DRUG USE FOR UNKNOWN INDICATION
     Dosage: 2G PER DAY
     Route: 042
     Dates: start: 20090309, end: 20090309
  4. KONAKION [Suspect]
     Indication: DRUG USE FOR UNKNOWN INDICATION
     Dosage: 3MG PER DAY
     Route: 042
     Dates: start: 20090309, end: 20090309
  5. FLUCONAZOLE [Concomitant]
     Dates: start: 20090309, end: 20090309

REACTIONS (3)
  - GASTROENTERITIS [None]
  - PYREXIA [None]
  - STEM CELL TRANSPLANT [None]
